FAERS Safety Report 8887102 (Version 2)
Quarter: 2012Q4

REPORT INFORMATION
  Report Type: 
  Country: NL (occurrence: NL)
  Receive Date: 20121105
  Receipt Date: 20121105
  Transmission Date: 20130627
  Serious: Yes (Death, Hospitalization)
  Sender: FDA-Public Use
  Company Number: NL-ABBOTT-12P-114-1004214-00

PATIENT
  Age: 53 Year
  Sex: Male

DRUGS (3)
  1. VALPROIC ACID [Suspect]
     Indication: PRODUCT USED FOR UNKNOWN INDICATION
     Route: 065
  2. INSULIN [Concomitant]
     Indication: PRODUCT USED FOR UNKNOWN INDICATION
     Route: 058
  3. ESOMEPRAZOLE [Concomitant]
     Indication: PRODUCT USED FOR UNKNOWN INDICATION

REACTIONS (12)
  - Respiratory distress [Unknown]
  - Toxicity to various agents [Fatal]
  - Hypokalaemia [Unknown]
  - Hypocalcaemia [Unknown]
  - Acute hepatic failure [Fatal]
  - Ammonia increased [Unknown]
  - Haemorrhagic diathesis [Unknown]
  - Vomiting [Unknown]
  - Hyponatraemia [Unknown]
  - Depressed level of consciousness [Unknown]
  - Anaemia [Unknown]
  - Multi-organ failure [Fatal]
